FAERS Safety Report 8943875 (Version 1)
Quarter: 2012Q4

REPORT INFORMATION
  Report Type: 
  Country: FR (occurrence: FR)
  Receive Date: 20121204
  Receipt Date: 20121204
  Transmission Date: 20130627
  Serious: Yes (Hospitalization)
  Sender: FDA-Public Use
  Company Number: FR-JNJFOC-20121114888

PATIENT
  Age: 80 Year
  Sex: Female

DRUGS (3)
  1. DUROGESIC [Suspect]
     Indication: PAIN IN EXTREMITY
     Route: 062
  2. DUROGESIC [Suspect]
     Indication: PAIN IN EXTREMITY
     Route: 062
     Dates: start: 20120828, end: 20120901
  3. TRAMADOL [Suspect]
     Indication: PAIN IN EXTREMITY
     Route: 065
     Dates: start: 20120823, end: 20120901

REACTIONS (3)
  - Hallucination [Recovered/Resolved]
  - Vomiting [Recovered/Resolved]
  - Aggression [Recovered/Resolved]
